FAERS Safety Report 9035227 (Version 1)
Quarter: 2013Q1

REPORT INFORMATION
  Report Type: Report from Study
  Country: US (occurrence: US)
  Receive Date: 20130129
  Receipt Date: 20130129
  Transmission Date: 20140127
  Serious: No
  Sender: FDA-Public Use
  Company Number: US-ABBOTT-12P-163-0899053-00

PATIENT
  Age: 51 Year
  Sex: Female

DRUGS (9)
  1. HUMIRA 40 MG/0.8 ML PEN [Suspect]
     Indication: CROHN^S DISEASE
     Dates: start: 20120114
  2. HUMIRA 40 MG/0.8 ML PEN [Suspect]
  3. HUMIRA 40 MG/0.8 ML PEN [Suspect]
  4. PREDNISONE [Concomitant]
     Indication: CROHN^S DISEASE
     Dosage: DAILY
  5. ASACOL [Concomitant]
     Indication: CROHN^S DISEASE
  6. MERCAPTOPURINE [Concomitant]
     Indication: CROHN^S DISEASE
     Dosage: DAILY
  7. NEXIUM [Concomitant]
     Indication: GASTROOESOPHAGEAL REFLUX DISEASE
     Dosage: DAILY
  8. ZANTAC [Concomitant]
     Indication: GASTROOESOPHAGEAL REFLUX DISEASE
     Dosage: DAILY
  9. RESTASIS [Concomitant]
     Indication: DRY EYE
     Route: 047

REACTIONS (1)
  - Oropharyngeal pain [Not Recovered/Not Resolved]
